FAERS Safety Report 8533101-7 (Version None)
Quarter: 2012Q3

REPORT INFORMATION
  Report Type: 
  Country: None (occurrence: None)
  Receive Date: 20120724
  Receipt Date: 20120713
  Transmission Date: 20120928
  Serious: Yes (Other)
  Sender: FDA-Public Use
  Company Number: FR-JNJFOC-20120707588

PATIENT
  Age: 31 Year
  Sex: Male

DRUGS (3)
  1. REMICADE [Suspect]
     Dosage: FIRST INFUSION
     Route: 042
     Dates: start: 20120308
  2. REMICADE [Suspect]
     Route: 042
     Dates: start: 20120418, end: 20120418
  3. REMICADE [Suspect]
     Indication: PRODUCT USED FOR UNKNOWN INDICATION
     Dosage: SECOND INFUSION
     Route: 042
     Dates: start: 20120322

REACTIONS (11)
  - ABDOMINAL PAIN UPPER [None]
  - INFUSION RELATED REACTION [None]
  - CHEST DISCOMFORT [None]
  - RASH ERYTHEMATOUS [None]
  - TOXIC SKIN ERUPTION [None]
  - GAMMA-GLUTAMYLTRANSFERASE INCREASED [None]
  - TRANSAMINASES INCREASED [None]
  - NAUSEA [None]
  - VOMITING [None]
  - DIARRHOEA [None]
  - MALAISE [None]
